FAERS Safety Report 4268607-2 (Version None)
Quarter: 2004Q1

REPORT INFORMATION
  Report Type: 
  Country: None (occurrence: None)
  Receive Date: 20040108
  Receipt Date: 20031226
  Transmission Date: 20041129
  Serious: Yes (Hospitalization)
  Sender: FDA-Public Use
  Company Number: 200323085GDDC

PATIENT
  Age: 75 Year
  Sex: Female

DRUGS (14)
  1. INDAPAMIDE [Suspect]
     Indication: ESSENTIAL HYPERTENSION
     Dosage: PO
     Route: 048
     Dates: start: 20030830, end: 20030908
  2. RAMIPRIL (TRITACE) [Concomitant]
  3. ATENOLOL [Concomitant]
  4. OMEPRAZOLE (LOSEC) [Concomitant]
  5. GLICLAZIDE [Concomitant]
  6. METFORMIN HCL [Concomitant]
  7. ASPIRIN [Concomitant]
  8. ISOSORBIDE MONONITRATE (DURIDE) [Concomitant]
  9. GTN [Concomitant]
  10. LEVOTHYROXINE SODIUM [Concomitant]
  11. QUININE [Concomitant]
  12. AMITRIPTYLINE HYDROCHLORIDE (TRYPTANOL) [Concomitant]
  13. ACETAMINOPHEN [Concomitant]
  14. CEFTRIAXONE [Concomitant]

REACTIONS (5)
  - HYPERKALAEMIA [None]
  - HYPERTENSION [None]
  - HYPONATRAEMIA [None]
  - MUSCULAR WEAKNESS [None]
  - OEDEMA [None]
